FAERS Safety Report 8058980-1 (Version None)
Quarter: 2012Q1

REPORT INFORMATION
  Report Type: 
  Country: None (occurrence: None)
  Receive Date: 20120119
  Receipt Date: 20120119
  Transmission Date: 20120608
  Serious: Yes (Disabling, Other)
  Sender: FDA-Public Use
  Company Number: None

PATIENT
  Sex: Female
  Weight: 90.7194 kg

DRUGS (1)
  1. BONIVA [Suspect]
     Indication: OSTEOPOROSIS
     Dosage: 150 MG. ONCE MONTHLY
     Dates: start: 20050701, end: 20120101

REACTIONS (6)
  - EXOSTOSIS [None]
  - ARTHRALGIA [None]
  - MUSCLE SPASMS [None]
  - MOVEMENT DISORDER [None]
  - ARTHRITIS [None]
  - BACK PAIN [None]
